FAERS Safety Report 4994418-6 (Version None)
Quarter: 2006Q1

REPORT INFORMATION
  Report Type: 
  Country: None (occurrence: None)
  Receive Date: 20060310
  Receipt Date: 20060221
  Transmission Date: 20060701
  Serious: No
  Sender: FDA-Public Use
  Company Number: IND-AE-06-SAN-009

PATIENT
  Age: 78 Year
  Sex: Male

DRUGS (5)
  1. SANCTURA [Suspect]
     Indication: HYPERTONIC BLADDER
     Dosage: 20MG - QD - ORAL
     Route: 048
     Dates: start: 20050901
  2. SANCTURA [Suspect]
     Indication: HYPERTONIC BLADDER
     Dosage: 20MG - 3XW - ORAL
     Route: 048
  3. FLOMAX [Concomitant]
  4. LIPITOR [Concomitant]
  5. CELEBREX [Concomitant]

REACTIONS (3)
  - DECREASED APPETITE [None]
  - IMPAIRED GASTRIC EMPTYING [None]
  - WEIGHT DECREASED [None]
